FAERS Safety Report 6450143-6 (Version None)
Quarter: 2009Q4

REPORT INFORMATION
  Report Type: 
  Country: None (occurrence: None)
  Receive Date: 20091113
  Receipt Date: 20091015
  Transmission Date: 20100525
  Serious: Yes (Death)
  Sender: FDA-Public Use
  Company Number: A-NJ2009-27208

PATIENT
  Age: 81 Year
  Sex: Male

DRUGS (1)
  1. VENTAVIS [Suspect]
     Indication: PULMONARY ARTERIAL HYPERTENSION
     Dosage: RESPIRATORY
     Route: 055
     Dates: start: 20070511

REACTIONS (1)
  - PULMONARY HYPERTENSION [None]
